FAERS Safety Report 14628402 (Version 2)
Quarter: 2018Q2

REPORT INFORMATION
  Report Type: Spontaneous
  Country: EG (occurrence: EG)
  Receive Date: 20180312
  Receipt Date: 20180418
  Transmission Date: 20180711
  Serious: Yes (Death, Life-Threatening, Hospitalization, Other)
  Sender: FDA-Public Use
  Company Number: EG-ASTRAZENECA-2018SE28448

PATIENT
  Age: 63 Year
  Sex: Male

DRUGS (16)
  1. ASPIRIN PROTECT [Concomitant]
     Active Substance: ASPIRIN
  2. ADANCOR [Concomitant]
     Active Substance: NICORANDIL
  3. DEBUTREX [Concomitant]
  4. BRILIQUE [Suspect]
     Active Substance: TICAGRELOR
     Route: 048
     Dates: start: 20180225
  5. TRITACE [Concomitant]
     Active Substance: RAMIPRIL
  6. CONCOR [Concomitant]
     Active Substance: BISOPROLOL FUMARATE
  7. MUCOSTA [Concomitant]
     Active Substance: REBAMIPIDE
  8. ZANTAC [Concomitant]
     Active Substance: RANITIDINE HYDROCHLORIDE
  9. CLEXANE [Concomitant]
     Active Substance: ENOXAPARIN SODIUM
  10. IMIDUR [Concomitant]
  11. MAGNESIUM SULPHATE [Concomitant]
     Active Substance: MAGNESIUM SULFATE
  12. ATOR [Concomitant]
     Active Substance: ATORVASTATIN CALCIUM
     Dosage: 80 MG
  13. PROCOROLAN [Concomitant]
  14. AGRASTAT [Concomitant]
     Active Substance: TIROFIBAN HYDROCHLORIDE
     Dosage: AFTER STENTS INSTILLATION
  15. CONTROLOC [Concomitant]
     Active Substance: PANTOPRAZOLE SODIUM
  16. STREPTOKINASE [Concomitant]
     Active Substance: STREPTOKINASE
     Dates: start: 20180301

REACTIONS (8)
  - Drug resistance [Fatal]
  - Dyspnoea [Unknown]
  - Coronary artery occlusion [Fatal]
  - Hypotension [Fatal]
  - Cardiac failure [Fatal]
  - Ventricular fibrillation [Unknown]
  - Cardiac arrest [Unknown]
  - Drug ineffective [Fatal]

NARRATIVE: CASE EVENT DATE: 20180302
